FAERS Safety Report 6649368-6 (Version None)
Quarter: 2010Q1

REPORT INFORMATION
  Report Type: 
  Country: None (occurrence: None)
  Receive Date: 20100324
  Receipt Date: 20100313
  Transmission Date: 20100710
  Serious: Yes (Other)
  Sender: FDA-Public Use
  Company Number: IN-PFIZER INC-2010034134

PATIENT
  Age: 38 Year
  Sex: Male

DRUGS (3)
  1. DAXID [Suspect]
     Indication: DEPRESSION
     Dosage: 50 MG, 2X/DAY
     Route: 048
  2. DAXID [Suspect]
     Dosage: 25 MG, 2X/DAY
     Route: 048
  3. ALPRAZOLAM [Concomitant]

REACTIONS (1)
  - HEPATOTOXICITY [None]
